FAERS Safety Report 20304349 (Version 1)
Quarter: 2022Q1

REPORT INFORMATION
  Report Type: Spontaneous
  Country: US (occurrence: US)
  Receive Date: 20220106
  Receipt Date: 20220106
  Transmission Date: 20220423
  Serious: Yes (Other)
  Sender: FDA-Public Use
  Company Number: US-ABBVIE-22K-163-4220926-00

PATIENT
  Age: 50 Year
  Sex: Male
  Weight: 79.450 kg

DRUGS (4)
  1. DUOPA [Suspect]
     Active Substance: CARBIDOPA\LEVODOPA
     Indication: Parkinson^s disease
     Route: 050
     Dates: start: 20161230
  2. DUOPA [Suspect]
     Active Substance: CARBIDOPA\LEVODOPA
  3. COVID-19 VACCINE [Concomitant]
     Indication: COVID-19 immunisation
     Dosage: JOHNSON AND JOHNSON
     Route: 030
     Dates: start: 20210401, end: 20210401
  4. COVID-19 VACCINE [Concomitant]
     Dosage: JOHNSON AND JOHNSON
     Route: 030
     Dates: start: 202112, end: 202112

REACTIONS (3)
  - Device dislocation [Not Recovered/Not Resolved]
  - Patient-device incompatibility [Unknown]
  - Abdominal pain upper [Recovered/Resolved]

NARRATIVE: CASE EVENT DATE: 20211201
